APPROVED DRUG PRODUCT: TIMOLOL MALEATE
Active Ingredient: TIMOLOL MALEATE
Strength: 20MG
Dosage Form/Route: TABLET;ORAL
Application: A072919 | Product #001
Applicant: ANI PHARMACEUTICALS INC
Approved: Jul 31, 1991 | RLD: No | RS: No | Type: DISCN